FAERS Safety Report 4679097-X (Version None)
Quarter: 2005Q2

REPORT INFORMATION
  Report Type: 
  Country: None (occurrence: None)
  Receive Date: 20050527
  Receipt Date: 20050404
  Transmission Date: 20051028
  Serious: No
  Sender: FDA-Public Use
  Company Number: PHEH2005US03912

PATIENT
  Age: 51 Year
  Sex: Female

DRUGS (10)
  1. ZELNORM [Suspect]
     Indication: IRRITABLE BOWEL SYNDROME
     Dosage: 6 MG, BID
     Dates: start: 20050101, end: 20050301
  2. OXYCONTIN [Concomitant]
  3. MIRALAX [Concomitant]
  4. TEMAZEPAM [Concomitant]
  5. GLYBURIDE [Concomitant]
  6. FUROSEMIDE [Concomitant]
  7. ALLOPURINOL [Concomitant]
  8. CELEBREX [Concomitant]
  9. ACETYLSALICYLIC ACID SRT [Concomitant]
  10. PLAVIX [Concomitant]

REACTIONS (4)
  - CHROMATURIA [None]
  - DRUG INEFFECTIVE [None]
  - FAECALOMA [None]
  - URINE ODOUR ABNORMAL [None]
